FAERS Safety Report 8773796 (Version 2)
Quarter: 2012Q4

REPORT INFORMATION
  Report Type: Report from Study
  Country: US (occurrence: US)
  Receive Date: 20120907
  Receipt Date: 20120927
  Transmission Date: 20130627
  Serious: Yes (Hospitalization)
  Sender: FDA-Public Use
  Company Number: US-EISAI INC-E7389-02938-CLI-US

PATIENT
  Age: 59 Year
  Sex: Female
  Weight: 68 kg

DRUGS (16)
  1. HALAVEN [Suspect]
     Indication: BREAST CANCER
     Route: 041
     Dates: start: 20120719, end: 20120726
  2. HALAVEN [Suspect]
     Route: 041
  3. RAMUCIRUMAB [Suspect]
     Indication: BREAST CANCER
     Route: 041
     Dates: start: 20120719
  4. CYMBALTA [Concomitant]
  5. METFORMIN [Concomitant]
     Dates: start: 2010
  6. TOPRAL [Concomitant]
     Dates: start: 2000
  7. DYAZIDE [Concomitant]
     Dates: start: 2005
  8. LIPITOR [Concomitant]
     Dates: start: 2000
  9. PRILOSEC [Concomitant]
     Dates: start: 2009
  10. FLEXERIL [Concomitant]
     Dates: start: 1988
  11. MONISTAT [Concomitant]
     Route: 054
     Dates: start: 20120731, end: 20120804
  12. LORTAB [Concomitant]
     Dates: start: 20120730
  13. FOLBIC [Concomitant]
     Dates: start: 201202
  14. ALOXI [Concomitant]
     Dates: start: 20120719
  15. DEXAMETHASONE [Concomitant]
     Dates: start: 20120719
  16. BENADRYL [Concomitant]
     Dates: start: 20120719

REACTIONS (7)
  - Dehydration [Recovered/Resolved]
  - Mucosal inflammation [Recovered/Resolved with Sequelae]
  - Neutrophil count decreased [Recovered/Resolved]
  - Febrile neutropenia [Recovered/Resolved]
  - Vaginal infection [None]
  - Nausea [None]
  - Vomiting [None]
